FAERS Safety Report 9295518 (Version 1)
Quarter: 2013Q2

REPORT INFORMATION
  Report Type: Spontaneous
  Country: US (occurrence: US)
  Receive Date: 20130517
  Receipt Date: 20130517
  Transmission Date: 20140414
  Serious: No
  Sender: FDA-Public Use
  Company Number: US-BANPHARM-20130583

PATIENT
  Age: 67 Year
  Sex: Female
  Weight: 81.19 kg

DRUGS (2)
  1. IBUPROFEN CAPSULES 200 MG [Suspect]
     Indication: BACK INJURY
     Dosage: 3 DF, Q6H,
     Route: 048
     Dates: start: 20130107, end: 20130120
  2. PROTONIX [Concomitant]

REACTIONS (3)
  - Pruritus [Recovered/Resolved]
  - Pain in extremity [Unknown]
  - Incorrect dose administered [Recovered/Resolved]
